FAERS Safety Report 12706607 (Version 2)
Quarter: 2016Q3

REPORT INFORMATION
  Report Type: Report from Study
  Country: CO (occurrence: CO)
  Receive Date: 20160901
  Receipt Date: 20160905
  Transmission Date: 20161109
  Serious: Yes (Hospitalization, Other)
  Sender: FDA-Public Use
  Company Number: US-ASTRAZENECA-2016SE64186

PATIENT
  Age: 89 Day
  Sex: Female
  Weight: 3.6 kg

DRUGS (1)
  1. SYNAGIS [Suspect]
     Active Substance: PALIVIZUMAB
     Indication: HEART DISEASE CONGENITAL
     Route: 030
     Dates: start: 20160114, end: 20160114

REACTIONS (7)
  - Necrotising colitis [Recovered/Resolved]
  - Sepsis [Recovered/Resolved]
  - Nephrocalcinosis [Recovered/Resolved]
  - Weight decreased [Unknown]
  - Inguinal hernia [Recovered/Resolved]
  - Gastrooesophageal reflux disease [Recovered/Resolved]
  - Mycetoma mycotic [Recovered/Resolved]

NARRATIVE: CASE EVENT DATE: 20160228
